FAERS Safety Report 14699302 (Version 1)
Quarter: 2018Q1

REPORT INFORMATION
  Report Type: Spontaneous
  Country: US (occurrence: US)
  Receive Date: 20180328
  Receipt Date: 20180328
  Transmission Date: 20180509
  Serious: Yes (Hospitalization)
  Sender: FDA-Public Use
  Company Number: None

PATIENT
  Age: 59 Year
  Sex: Male

DRUGS (2)
  1. LISINOPRIL. [Suspect]
     Active Substance: LISINOPRIL
     Indication: HYPERTENSION
     Route: 048
     Dates: start: 20120219, end: 20180309
  2. TECHNECTIUM, TC-99M [Suspect]
     Active Substance: TECHNETIUM TC-99M
     Indication: CARDIOVASCULAR DISORDER
     Dates: start: 20180309, end: 20180309

REACTIONS (1)
  - Angioedema [None]

NARRATIVE: CASE EVENT DATE: 20180309
